FAERS Safety Report 9538592 (Version 1)
Quarter: 2013Q2

REPORT INFORMATION
  Report Type: Spontaneous
  Country: US (occurrence: None)
  Receive Date: 20130517
  Receipt Date: 20130517
  Transmission Date: 20140414
  Serious: No
  Sender: FDA-Public Use
  Company Number: 1000043338

PATIENT
  Sex: Female

DRUGS (2)
  1. VIIBRYD [Suspect]
     Route: 048
     Dates: start: 20130206, end: 20130212
  2. VIIBRYD [Suspect]
     Route: 048
     Dates: start: 20130220, end: 2013

REACTIONS (3)
  - Asthenia [None]
  - Slow speech [None]
  - Muscular weakness [None]
